FAERS Safety Report 5337264-6 (Version None)
Quarter: 2007Q2

REPORT INFORMATION
  Report Type: 
  Country: None (occurrence: None)
  Receive Date: 20070529
  Receipt Date: 20070516
  Transmission Date: 20071010
  Serious: Yes (Other)
  Sender: FDA-Public Use
  Company Number: B0470005A

PATIENT
  Age: 53 Year
  Sex: Male

DRUGS (2)
  1. ACYCLOVIR [Suspect]
     Dosage: 15MGK THREE TIMES PER DAY
     Route: 065
  2. AMOXICILLIN [Suspect]
     Dosage: 200MGK PER DAY
     Route: 042

REACTIONS (18)
  - AGITATION [None]
  - BLOOD CREATINE ABNORMAL [None]
  - BLOOD CREATININE INCREASED [None]
  - BODY TEMPERATURE INCREASED [None]
  - CONFUSIONAL STATE [None]
  - DISORIENTATION [None]
  - DRUG TOXICITY [None]
  - ENCEPHALITIS HERPES [None]
  - ENCEPHALOPATHY [None]
  - GENERAL PHYSICAL HEALTH DETERIORATION [None]
  - HAEMATURIA [None]
  - HERPES SIMPLEX [None]
  - HYPERKALAEMIA [None]
  - MENINGITIS [None]
  - METASTASES TO MENINGES [None]
  - OLIGURIA [None]
  - RENAL FAILURE [None]
  - UNRESPONSIVE TO STIMULI [None]
